FAERS Safety Report 24817679 (Version 1)
Quarter: 2025Q1

REPORT INFORMATION
  Report Type: Report from Study
  Country: US (occurrence: US)
  Receive Date: 20250108
  Receipt Date: 20250108
  Transmission Date: 20250409
  Serious: Yes (Other)
  Sender: GLAXOSMITHKLINE
  Company Number: US-GSK-US2024AMR165213

PATIENT

DRUGS (7)
  1. BELIMUMAB [Suspect]
     Active Substance: BELIMUMAB
     Indication: Systemic lupus erythematosus
     Dosage: 200 MG, MO
     Route: 042
     Dates: start: 20200228, end: 20230215
  2. BELIMUMAB [Suspect]
     Active Substance: BELIMUMAB
     Dosage: 200 MG, MO
     Route: 042
     Dates: start: 20231222, end: 20240724
  3. ALBUTEROL SULFATE [Concomitant]
     Active Substance: ALBUTEROL SULFATE
     Indication: Asthma
     Dosage: 1 PUFF(S), WE, 2.5MG/3ML, INHALATION SOLUTION
     Route: 055
     Dates: start: 20231101, end: 20231130
  4. ALBUTEROL SULFATE [Concomitant]
     Active Substance: ALBUTEROL SULFATE
     Dosage: 2 PUFF(S), WE
     Route: 055
     Dates: start: 20231101, end: 20240724
  5. ASPIRIN [Concomitant]
     Active Substance: ASPIRIN
     Indication: Systemic lupus erythematosus
     Dosage: 81 MG, QD
     Route: 048
     Dates: start: 20240206, end: 20240724
  6. HYDROXYCHLOROQUINE [Concomitant]
     Active Substance: HYDROXYCHLOROQUINE
     Indication: Systemic lupus erythematosus
     Dosage: 100 MG, BID
     Route: 048
     Dates: start: 20231215, end: 20240724
  7. HYDROXYCHLOROQUINE [Concomitant]
     Active Substance: HYDROXYCHLOROQUINE
     Indication: Rheumatoid arthritis

REACTIONS (8)
  - Pyrexia [Recovered/Resolved]
  - Nephrolithiasis [Unknown]
  - Gastric bypass [Unknown]
  - Cholelithiasis [Unknown]
  - Rosacea [Unknown]
  - COVID-19 [Recovered/Resolved]
  - Multiple allergies [Unknown]
  - Exposure during pregnancy [Unknown]

NARRATIVE: CASE EVENT DATE: 20240107
